FAERS Safety Report 25721595 (Version 1)
Quarter: 2025Q3

REPORT INFORMATION
  Report Type: Spontaneous
  Country: GB (occurrence: GB)
  Receive Date: 20250825
  Receipt Date: 20250825
  Transmission Date: 20251020
  Serious: Yes (Other)
  Sender: MYLAN
  Company Number: None

PATIENT
  Age: 67 Year
  Sex: Male
  Weight: 81 kg

DRUGS (4)
  1. LANSOPRAZOLE [Suspect]
     Active Substance: LANSOPRAZOLE
     Indication: Constipation
     Dosage: 30 MILLIGRAM, QD (30 MG ONCE PER DAY)
     Dates: start: 20250301, end: 20250306
  2. LANSOPRAZOLE [Suspect]
     Active Substance: LANSOPRAZOLE
     Dosage: 30 MILLIGRAM, QD (30 MG ONCE PER DAY)
     Route: 065
     Dates: start: 20250301, end: 20250306
  3. LANSOPRAZOLE [Suspect]
     Active Substance: LANSOPRAZOLE
     Dosage: 30 MILLIGRAM, QD (30 MG ONCE PER DAY)
     Route: 065
     Dates: start: 20250301, end: 20250306
  4. LANSOPRAZOLE [Suspect]
     Active Substance: LANSOPRAZOLE
     Dosage: 30 MILLIGRAM, QD (30 MG ONCE PER DAY)
     Dates: start: 20250301, end: 20250306

REACTIONS (2)
  - Dysphagia [Recovered/Resolved]
  - Medication error [Unknown]

NARRATIVE: CASE EVENT DATE: 20250306
